FAERS Safety Report 8902405 (Version 2)
Quarter: 2013Q1

REPORT INFORMATION
  Report Type: Spontaneous
  Country: BR (occurrence: BR)
  Receive Date: 20121112
  Receipt Date: 20130329
  Transmission Date: 20140127
  Serious: Yes (Death, Hospitalization, Other)
  Sender: FDA-Public Use
  Company Number: BR-ELI_LILLY_AND_COMPANY-BR201210009998

PATIENT
  Age: 86 Year
  Sex: Female
  Weight: 49 kg

DRUGS (4)
  1. FORTEO [Suspect]
     Indication: OSTEOPOROSIS
     Dosage: 20 UG, QD
     Route: 058
     Dates: start: 201206
  2. ALDACTONE [Concomitant]
     Dosage: UNK, UNKNOWN
     Route: 065
  3. CARDILOL                           /00984501/ [Concomitant]
     Dosage: UNK, UNKNOWN
     Route: 065
  4. LASIX [Concomitant]
     Dosage: UNK, UNKNOWN
     Route: 065

REACTIONS (7)
  - Respiratory failure [Fatal]
  - Hepatic cirrhosis [Fatal]
  - Renal failure [Fatal]
  - Pneumonia [Unknown]
  - Convulsion [Unknown]
  - Schistosomiasis liver [Not Recovered/Not Resolved]
  - Sepsis [Unknown]
